FAERS Safety Report 7376307-5 (Version None)
Quarter: 2011Q1

REPORT INFORMATION
  Report Type: 
  Country: None (occurrence: None)
  Receive Date: 20110325
  Receipt Date: 20110324
  Transmission Date: 20110831
  Serious: Yes (Hospitalization, Other)
  Sender: FDA-Public Use
  Company Number: DK-ABBOTT-10P-044-0676485-00

PATIENT
  Sex: Male
  Weight: 87.7 kg

DRUGS (2)
  1. HUMIRA [Suspect]
     Indication: COLITIS ULCERATIVE
  2. REMICADE [Suspect]
     Indication: COLITIS ULCERATIVE
     Route: 042
     Dates: start: 20100106, end: 20100110

REACTIONS (5)
  - PELVIC POUCH PROCEDURE [None]
  - ARTHRITIS REACTIVE [None]
  - DRUG INEFFECTIVE [None]
  - RESECTION OF RECTUM [None]
  - PELVIC ABSCESS [None]
